FAERS Safety Report 20956581 (Version 1)
Quarter: 2022Q2

REPORT INFORMATION
  Report Type: Spontaneous
  Country: US (occurrence: None)
  Receive Date: 20220613
  Receipt Date: 20220613
  Transmission Date: 20220721
  Serious: No
  Sender: FDA-Public Use
  Company Number: None

PATIENT
  Age: 68 Year
  Sex: 0

DRUGS (4)
  1. BEBTELOVIMAB [Suspect]
     Active Substance: BEBTELOVIMAB
     Route: 040
     Dates: start: 20220613, end: 20220613
  2. Meloxicam (Mobic) 15mg tabs [Concomitant]
  3. Losartan (Cozaar) 50mg tabs [Concomitant]
  4. Loratadine (Claritin) 10mg tabs [Concomitant]

REACTIONS (2)
  - Flushing [None]
  - Back pain [None]

NARRATIVE: CASE EVENT DATE: 20220613
